FAERS Safety Report 14309506 (Version 1)
Quarter: 2017Q4

REPORT INFORMATION
  Report Type: Spontaneous
  Country: ES (occurrence: ES)
  Receive Date: 20171220
  Receipt Date: 20171220
  Transmission Date: 20180321
  Serious: Yes (Hospitalization)
  Sender: FDA-Public Use
  Company Number: PHHY2017ES189286

PATIENT
  Age: 78 Year
  Sex: Male

DRUGS (3)
  1. QUETIAPINE. [Suspect]
     Active Substance: QUETIAPINE
     Indication: AGITATION
     Dosage: 25 MG, QD
     Route: 048
     Dates: start: 20170928, end: 20171003
  2. MEROPENEM. [Interacting]
     Active Substance: MEROPENEM
     Indication: PYREXIA
     Dosage: 3 G, QD
     Route: 042
     Dates: start: 20171002, end: 20171010
  3. ERTAPENEM. [Interacting]
     Active Substance: ERTAPENEM SODIUM
     Indication: PYREXIA
     Dosage: 1 G, QD
     Route: 042
     Dates: start: 20170929, end: 20171002

REACTIONS (1)
  - Encephalopathy [Recovered/Resolved]

NARRATIVE: CASE EVENT DATE: 20171002
